FAERS Safety Report 14015292 (Version 1)
Quarter: 2017Q3

REPORT INFORMATION
  Report Type: Report from Study
  Country: US (occurrence: DE)
  Receive Date: 20170927
  Receipt Date: 20170927
  Transmission Date: 20171128
  Serious: Yes (Other)
  Sender: FDA-Public Use
  Company Number: US-SUNOVION-2017SUN004152

PATIENT
  Sex: Female
  Weight: 65 kg

DRUGS (2)
  1. INDACATEROL AND GLYCOPYRROLATE [Suspect]
     Active Substance: GLYCOPYRROLATE\INDACATEROL MALEATE
     Indication: CHRONIC OBSTRUCTIVE PULMONARY DISEASE
     Dosage: GLYCOPYRRONIUM BROMIDE 50 ?G/ INDACATEROL 110 ?G (43/85?G)
     Route: 055
  2. BEROTEC [Concomitant]
     Active Substance: FENOTEROL HYDROBROMIDE

REACTIONS (1)
  - Weight decreased [Unknown]
